FAERS Safety Report 9506823 (Version 2)
Quarter: 2013Q4

REPORT INFORMATION
  Report Type: Report from Study
  Country: JP (occurrence: JP)
  Receive Date: 20130909
  Receipt Date: 20131022
  Transmission Date: 20140711
  Serious: Yes (Other)
  Sender: FDA-Public Use
  Company Number: JP-MERCK-1309JPN003143

PATIENT
  Age: 65 Year
  Sex: Female
  Weight: 49 kg

DRUGS (3)
  1. GLACTIV [Suspect]
     Indication: TYPE 2 DIABETES MELLITUS
     Dosage: 50 MG, QD
     Route: 048
     Dates: start: 20120312
  2. SEIBULE [Concomitant]
  3. NOVOLIN 30R [Concomitant]

REACTIONS (1)
  - Hypoglycaemia [Recovered/Resolved]
